FAERS Safety Report 11616717 (Version 2)
Quarter: 2016Q1

REPORT INFORMATION
  Report Type: Report from Study
  Country: US (occurrence: US)
  Receive Date: 20151009
  Receipt Date: 20160321
  Transmission Date: 20160525
  Serious: Yes (Hospitalization, Other)
  Sender: FDA-Public Use
  Company Number: US-AMGEN-USASL2015104571

PATIENT
  Age: 33 Year
  Sex: Female

DRUGS (2)
  1. METHOTREXATE [Concomitant]
     Active Substance: METHOTREXATE
  2. ENBREL [Suspect]
     Active Substance: ETANERCEPT
     Indication: RHEUMATOID ARTHRITIS
     Dosage: UNK
     Route: 065
     Dates: start: 2015

REACTIONS (8)
  - Immune system disorder [Unknown]
  - Oral disorder [Unknown]
  - Inappropriate schedule of drug administration [Unknown]
  - Arthritis [Unknown]
  - Staphylococcal infection [Unknown]
  - Infection [Unknown]
  - Drug interaction [Unknown]
  - Oral infection [Unknown]

NARRATIVE: CASE EVENT DATE: 2015
